FAERS Safety Report 14973504 (Version 2)
Quarter: 2018Q3

REPORT INFORMATION
  Report Type: Spontaneous
  Country: JP (occurrence: JP)
  Receive Date: 20180605
  Receipt Date: 20180702
  Transmission Date: 20181010
  Serious: Yes (Hospitalization)
  Sender: FDA-Public Use
  Company Number: JP-FERRINGPH-2018FE02813

PATIENT
  Age: 51 Year
  Sex: Female

DRUGS (13)
  1. PRIMOBOLAN                         /00044802/ [Concomitant]
  2. LANSOPRAZOLE. [Concomitant]
     Active Substance: LANSOPRAZOLE
  3. MINIRINMELT [Suspect]
     Active Substance: DESMOPRESSIN ACETATE
     Indication: PRODUCT USED FOR UNKNOWN INDICATION
     Dosage: 120 ?G, 3 TIMES DAILY
     Route: 065
     Dates: start: 20180525
  4. EXCEGRAN [Concomitant]
     Active Substance: ZONISAMIDE
  5. GABAPEN [Concomitant]
     Active Substance: GABAPENTIN
  6. MINIRINMELT [Suspect]
     Active Substance: DESMOPRESSIN ACETATE
     Dosage: 60 ?G, 1 TIME DAILY AT NOON
     Route: 065
  7. MINIRINMELT [Suspect]
     Active Substance: DESMOPRESSIN ACETATE
     Dosage: 120 ?G, 2 TIMES DAILY IN THE MORNING AND EVENING
     Route: 065
     Dates: start: 20180620
  8. CEFAZOLIN SODIUM. [Concomitant]
     Active Substance: CEFAZOLIN SODIUM
  9. MINIRINMELT [Suspect]
     Active Substance: DESMOPRESSIN ACETATE
     Dosage: 120 ?G, 2 TIMES DAILY
     Route: 065
     Dates: start: 20180614
  10. THYRADIN [Concomitant]
     Active Substance: LEVOTHYROXINE
  11. CORTRIL [Concomitant]
     Active Substance: HYDROCORTISONE
  12. MAGNESIUM OXIDE. [Concomitant]
     Active Substance: MAGNESIUM OXIDE
  13. DESMOPRESSIN KYOWA [Suspect]
     Active Substance: DESMOPRESSIN
     Indication: DIABETES INSIPIDUS
     Dosage: 10 ?G, 3 TIMES DAILY
     Route: 045

REACTIONS (2)
  - Polyuria [Unknown]
  - Condition aggravated [Unknown]

NARRATIVE: CASE EVENT DATE: 20180603
